FAERS Safety Report 5951681-2 (Version None)
Quarter: 2008Q4

REPORT INFORMATION
  Report Type: 
  Country: None (occurrence: None)
  Receive Date: 20081022
  Receipt Date: 20080819
  Transmission Date: 20090506
  Serious: No
  Sender: FDA-Public Use
  Company Number: ALL1-2008-02344

PATIENT
  Age: 12 Year
  Sex: Male
  Weight: 65.8 kg

DRUGS (2)
  1. VYVANSE [Suspect]
     Indication: ATTENTION DEFICIT/HYPERACTIVITY DISORDER
     Dosage: 50 MG, 1X/DAY, ORAL; 70 MG, 1X/DAY:QD, ORAL
     Route: 048
     Dates: start: 20080601, end: 20080717
  2. VYVANSE [Suspect]
     Indication: ATTENTION DEFICIT/HYPERACTIVITY DISORDER
     Dosage: 50 MG, 1X/DAY, ORAL; 70 MG, 1X/DAY:QD, ORAL
     Route: 048
     Dates: start: 20080718

REACTIONS (2)
  - DRUG INEFFECTIVE [None]
  - IRRITABILITY [None]
